FAERS Safety Report 16014912 (Version 1)
Quarter: 2019Q1

REPORT INFORMATION
  Report Type: Report from Study
  Country: TH (occurrence: TH)
  Receive Date: 20190227
  Receipt Date: 20190227
  Transmission Date: 20190418
  Serious: Yes (Death)
  Sender: FDA-Public Use
  Company Number: TH-TAKEDA-2019TUS007694

PATIENT
  Sex: Male

DRUGS (4)
  1. BORTEZOMIB. [Suspect]
     Active Substance: BORTEZOMIB
     Dosage: 2 MILLIGRAM, QD
     Route: 065
     Dates: start: 20190126
  2. BORTEZOMIB. [Suspect]
     Active Substance: BORTEZOMIB
     Dosage: 2 MILLIGRAM, QD
     Route: 065
     Dates: start: 20190119
  3. BORTEZOMIB. [Suspect]
     Active Substance: BORTEZOMIB
     Indication: PLASMA CELL MYELOMA
     Dosage: 2 MILLIGRAM, QD
     Route: 065
     Dates: start: 20190112
  4. BORTEZOMIB. [Suspect]
     Active Substance: BORTEZOMIB
     Dosage: 2 MILLIGRAM, QD
     Route: 065
     Dates: start: 20190202

REACTIONS (1)
  - Death [Fatal]
